FAERS Safety Report 8378591-8 (Version None)
Quarter: 2012Q2

REPORT INFORMATION
  Report Type: 
  Country: None (occurrence: None)
  Receive Date: 20120522
  Receipt Date: 20120126
  Transmission Date: 20120825
  Serious: No
  Sender: FDA-Public Use
  Company Number: US-ASTRAZENECA-2012SE05779

PATIENT
  Age: 41 Year
  Sex: Male

DRUGS (3)
  1. XANAX [Suspect]
     Route: 065
  2. PRILOSEC [Suspect]
     Route: 048
  3. NEXIUM [Concomitant]
     Route: 048

REACTIONS (7)
  - GASTROOESOPHAGEAL REFLUX DISEASE [None]
  - POTENTIATING DRUG INTERACTION [None]
  - MEMORY IMPAIRMENT [None]
  - OESOPHAGEAL DISORDER [None]
  - DIZZINESS [None]
  - DRUG HYPERSENSITIVITY [None]
  - FEELING ABNORMAL [None]
